FAERS Safety Report 8967247 (Version 1)
Quarter: 2012Q4

REPORT INFORMATION
  Report Type: 
  Country: US (occurrence: US)
  Receive Date: 20121214
  Receipt Date: 20121214
  Transmission Date: 20130627
  Serious: No
  Sender: FDA-Public Use
  Company Number: US-GLAXOSMITHKLINE-A0969731A

PATIENT
  Sex: Female

DRUGS (5)
  1. FLONASE [Suspect]
     Indication: UPPER-AIRWAY COUGH SYNDROME
     Route: 045
  2. SYNTHROID [Concomitant]
  3. BUMEX [Concomitant]
  4. COUMADIN [Concomitant]
  5. METOPROLOL [Concomitant]

REACTIONS (1)
  - Drug ineffective [Recovered/Resolved]
